FAERS Safety Report 5289424-0 (Version None)
Quarter: 2007Q2

REPORT INFORMATION
  Report Type: 
  Country: None (occurrence: None)
  Receive Date: 20070406
  Receipt Date: 20070329
  Transmission Date: 20071010
  Serious: Yes (Hospitalization, Other)
  Sender: FDA-Public Use
  Company Number: DE-AMGEN-UK217446

PATIENT
  Sex: Female
  Weight: 57 kg

DRUGS (2)
  1. ARANESP [Suspect]
     Indication: RENAL FAILURE CHRONIC
     Route: 065
     Dates: start: 20070110
  2. NEORECORMON [Suspect]
     Indication: RENAL FAILURE CHRONIC
     Route: 058
     Dates: end: 20070110

REACTIONS (2)
  - ANAEMIA [None]
  - DRUG EFFECT DECREASED [None]
